FAERS Safety Report 13372281 (Version 1)
Quarter: 2017Q1

REPORT INFORMATION
  Report Type: Spontaneous
  Country: US (occurrence: US)
  Receive Date: 20170324
  Receipt Date: 20170324
  Transmission Date: 20170429
  Serious: Yes (Life-Threatening, Hospitalization, Disabling, Other)
  Sender: FDA-Public Use
  Company Number: None

PATIENT
  Age: 49 Year
  Sex: Male
  Weight: 85.5 kg

DRUGS (6)
  1. HALDOL [Concomitant]
     Active Substance: HALOPERIDOL
  2. SAPHRIS [Suspect]
     Active Substance: ASENAPINE MALEATE
     Indication: SCHIZOPHRENIA
     Dates: start: 20141016, end: 20141116
  3. THYROXINE [Concomitant]
     Active Substance: LEVOTHYROXINE
  4. TYLENOL [Concomitant]
     Active Substance: ACETAMINOPHEN
  5. VALPROIC ACID. [Concomitant]
     Active Substance: VALPROIC ACID
  6. VALIUM [Concomitant]
     Active Substance: DIAZEPAM

REACTIONS (5)
  - Neuroleptic malignant syndrome [None]
  - Abasia [None]
  - Fall [None]
  - Seizure [None]
  - Communication disorder [None]

NARRATIVE: CASE EVENT DATE: 20141116
